FAERS Safety Report 8314935 (Version 5)
Quarter: 2012Q4

REPORT INFORMATION
  Report Type: Report from Study
  Country: BG (occurrence: BG)
  Receive Date: 20111229
  Receipt Date: 20121029
  Transmission Date: 20130627
  Serious: Yes (Hospitalization)
  Sender: FDA-Public Use
  Company Number: BG-JNJFOC-20111209541

PATIENT
  Age: 35 Year
  Sex: Male
  Weight: 77.8 kg

DRUGS (4)
  1. RISPERIDONE [Suspect]
     Indication: SCHIZOPHRENIA
     Route: 048
     Dates: start: 20100430, end: 20100520
  2. RISPERIDONE [Suspect]
     Indication: SCHIZOPHRENIA
     Route: 048
     Dates: start: 20100521, end: 20111220
  3. ANALGIN [Concomitant]
     Indication: HEADACHE
     Route: 048
     Dates: start: 20100609, end: 20100610
  4. IMODIUM [Concomitant]
     Indication: DIARRHOEA
     Route: 048
     Dates: start: 20110724, end: 20110728

REACTIONS (1)
  - Schizophrenia, paranoid type [Recovered/Resolved]
